FAERS Safety Report 6011446-2 (Version None)
Quarter: 2008Q4

REPORT INFORMATION
  Report Type: 
  Country: None (occurrence: None)
  Receive Date: 20081217
  Receipt Date: 20081217
  Transmission Date: 20090506
  Serious: Yes (Hospitalization)
  Sender: FDA-Public Use
  Company Number: None

PATIENT
  Age: 30 Year
  Sex: Female
  Weight: 79.3795 kg

DRUGS (1)
  1. AVELOX [Suspect]
     Indication: SINUSITIS
     Dosage: PO
     Route: 048
     Dates: start: 20081215, end: 20081216

REACTIONS (4)
  - DIZZINESS [None]
  - DYSARTHRIA [None]
  - HEADACHE [None]
  - MUSCULAR WEAKNESS [None]
